FAERS Safety Report 11573361 (Version 1)
Quarter: 2015Q3

REPORT INFORMATION
  Report Type: Spontaneous
  Country: US (occurrence: US)
  Receive Date: 20150929
  Receipt Date: 20150929
  Transmission Date: 20151125
  Serious: No
  Sender: FDA-Public Use
  Company Number: US-BRACCO-011863

PATIENT

DRUGS (1)
  1. CYSTOGRAFIN [Suspect]
     Active Substance: DIATRIZOATE MEGLUMINE
     Indication: DIAGNOSTIC PROCEDURE
     Route: 042

REACTIONS (2)
  - No adverse event [Unknown]
  - Incorrect route of drug administration [Unknown]
